FAERS Safety Report 16556791 (Version 2)
Quarter: 2019Q3

REPORT INFORMATION
  Report Type: Report from Study
  Country: BR (occurrence: BR)
  Receive Date: 20190711
  Receipt Date: 20190724
  Transmission Date: 20191004
  Serious: Yes (Other)
  Sender: FDA-Public Use
  Company Number: BR-JNJFOC-20190621334

PATIENT
  Age: 70 Year
  Sex: Male

DRUGS (3)
  1. LOSARTAN POTASSIUM. [Concomitant]
     Active Substance: LOSARTAN POTASSIUM
  2. AVODART [Concomitant]
     Active Substance: DUTASTERIDE
  3. REMICADE [Suspect]
     Active Substance: INFLIXIMAB
     Indication: CROHN^S DISEASE
     Route: 042
     Dates: start: 20151214

REACTIONS (2)
  - Intestinal obstruction [Unknown]
  - Dizziness [Unknown]

NARRATIVE: CASE EVENT DATE: 2019
